FAERS Safety Report 18992075 (Version 1)
Quarter: 2021Q1

REPORT INFORMATION
  Report Type: Spontaneous
  Country: US (occurrence: US)
  Receive Date: 20210310
  Receipt Date: 20210310
  Transmission Date: 20210420
  Serious: Yes (Hospitalization)
  Sender: FDA-Public Use
  Company Number: None

PATIENT
  Age: 35 Year
  Sex: Male
  Weight: 75.7 kg

DRUGS (6)
  1. MERCAPTOPURINE. [Suspect]
     Active Substance: MERCAPTOPURINE
     Dates: end: 20210210
  2. METHOTREXATE. [Suspect]
     Active Substance: METHOTREXATE
     Dates: end: 20210121
  3. ONCASPAR [Suspect]
     Active Substance: PEGASPARGASE
     Dates: end: 20210211
  4. CYTARABINE. [Suspect]
     Active Substance: CYTARABINE
     Dates: end: 20210207
  5. VINCRISTINE SULFATE. [Suspect]
     Active Substance: VINCRISTINE SULFATE
     Dates: end: 20210218
  6. CYCLOPHOSPHAMIDE. [Suspect]
     Active Substance: CYCLOPHOSPHAMIDE
     Dates: end: 20210128

REACTIONS (17)
  - Pancytopenia [None]
  - Blood lactic acid increased [None]
  - Lymphadenopathy [None]
  - Vomiting [None]
  - Abdominal pain [None]
  - Malaise [None]
  - Gastrointestinal wall thickening [None]
  - Nausea [None]
  - Jaw disorder [None]
  - Pyrexia [None]
  - Tonsillitis [None]
  - Colitis [None]
  - Musculoskeletal discomfort [None]
  - Diarrhoea [None]
  - Abdominal distension [None]
  - Oropharyngeal pain [None]
  - Pharyngitis [None]

NARRATIVE: CASE EVENT DATE: 20210218
